FAERS Safety Report 11229227 (Version 1)
Quarter: 2015Q2

REPORT INFORMATION
  Report Type: Report from Study
  Country: US (occurrence: US)
  Receive Date: 20150630
  Receipt Date: 20150630
  Transmission Date: 20150821
  Serious: Yes (Congenital Anomaly)
  Sender: FDA-Public Use
  Company Number: PHHY2014US076227

PATIENT
  Age: 13 Day
  Sex: Male

DRUGS (24)
  1. RHUMAB-E25 [Suspect]
     Active Substance: OMALIZUMAB
     Dosage: 150 MG, EVERY 4 WEEKS (MATERNAL DOSE)
     Route: 064
     Dates: start: 20140409
  2. DIPHTHERIA [Concomitant]
     Indication: PRODUCT USED FOR UNKNOWN INDICATION
     Route: 065
  3. TETANUS [Concomitant]
     Active Substance: UNSPECIFIED INGREDIENT
     Indication: PRODUCT USED FOR UNKNOWN INDICATION
     Route: 065
  4. VARICELLA VACCINE [Concomitant]
     Active Substance: VARICELLA-ZOSTER VIRUS STRAIN OKA/MERCK LIVE ANTIGEN
     Indication: PRODUCT USED FOR UNKNOWN INDICATION
     Route: 065
  5. RHUMAB-E25 [Suspect]
     Active Substance: OMALIZUMAB
     Dosage: 150 MG, EVERY 4 WEEKS (MATERNAL DOSE)
     Route: 064
     Dates: start: 20140507
  6. ROTAVIRUS [Concomitant]
     Indication: PRODUCT USED FOR UNKNOWN INDICATION
     Route: 065
  7. RHUMAB-E25 [Suspect]
     Active Substance: OMALIZUMAB
     Dosage: 150 MG, EVERY 4 WEEKS (MATERNAL DOSE)
     Route: 064
     Dates: start: 20131016
  8. AMOXICILLIN. [Suspect]
     Active Substance: AMOXICILLIN
     Indication: UPPER RESPIRATORY TRACT INFECTION
     Route: 065
  9. PNEUMOCOCCAL [Concomitant]
     Active Substance: PNEUMOCOCCAL VACCINE POLYVALENT
     Indication: PRODUCT USED FOR UNKNOWN INDICATION
     Route: 065
  10. MEASLES [Concomitant]
     Indication: PRODUCT USED FOR UNKNOWN INDICATION
     Route: 065
  11. HEPATITIS B [Concomitant]
     Active Substance: HUMAN HEPATITIS B VIRUS IMMUNE GLOBULIN
     Indication: PRODUCT USED FOR UNKNOWN INDICATION
     Route: 065
  12. RHUMAB-E25 [Suspect]
     Active Substance: OMALIZUMAB
     Indication: FOETAL EXPOSURE DURING PREGNANCY
     Dosage: 150 MG, EVERY 4 WEEKS (MATERNAL DOSE)
     Route: 064
     Dates: start: 20120717
  13. PERTUSSIS VAC [Concomitant]
     Indication: PRODUCT USED FOR UNKNOWN INDICATION
     Route: 065
  14. RUBELLA [Concomitant]
     Active Substance: RUBELLA VIRUS STRAIN WISTAR RA 27/3 LIVE ANTIGEN
     Indication: PRODUCT USED FOR UNKNOWN INDICATION
     Route: 065
  15. RHUMAB-E25 [Suspect]
     Active Substance: OMALIZUMAB
     Dosage: 150 MG, EVERY 4 WEEKS (MATERNAL DOSE)
     Route: 064
     Dates: start: 20130819
  16. RHUMAB-E25 [Suspect]
     Active Substance: OMALIZUMAB
     Dosage: 150 MG, EVERY 4 WEEKS (MATERNAL DOSE)
     Route: 064
     Dates: start: 20130919
  17. RHUMAB-E25 [Suspect]
     Active Substance: OMALIZUMAB
     Dosage: 150 MG, EVERY 4 WEEKS (MATERNAL DOSE)
     Route: 064
     Dates: start: 20131119
  18. RHUMAB-E25 [Suspect]
     Active Substance: OMALIZUMAB
     Dosage: 150 MG, EVERY 4 WEEKS (MATERNAL DOSE)
     Route: 064
     Dates: start: 20140312
  19. MUMPS VACCINE [Concomitant]
     Active Substance: MUMPS VIRUS STRAIN B LEVEL JERYL LYNN LIVE ANTIGEN
     Indication: PRODUCT USED FOR UNKNOWN INDICATION
     Route: 065
  20. RHUMAB-E25 [Suspect]
     Active Substance: OMALIZUMAB
     Dosage: 150 MG, EVERY 4 WEEKS (MATERNAL DOSE)
     Route: 064
     Dates: start: 20131217
  21. RHUMAB-E25 [Suspect]
     Active Substance: OMALIZUMAB
     Dosage: 150 MG, EVERY 4 WEEKS (MATERNAL DOSE)
     Route: 064
     Dates: start: 20140115
  22. HAEMOPHILUS INFLUENZA TYPE B VACCINE [Concomitant]
     Active Substance: HAEMOPHILUS INFLUENZAE TYPE B
     Indication: PRODUCT USED FOR UNKNOWN INDICATION
     Route: 065
  23. RHUMAB-E25 [Suspect]
     Active Substance: OMALIZUMAB
     Dosage: 150 MG, EVERY 4 WEEKS (MATERNAL DOSE)
     Route: 064
     Dates: start: 20140212
  24. POLIOVIRUS [Concomitant]
     Indication: PRODUCT USED FOR UNKNOWN INDICATION
     Route: 065

REACTIONS (8)
  - Foetal exposure during pregnancy [Unknown]
  - Phimosis [Unknown]
  - Dacryostenosis congenital [Unknown]
  - Teething [Unknown]
  - Sinusitis [Unknown]
  - Upper respiratory tract infection [Unknown]
  - Ophthalmia neonatorum [Unknown]
  - Diarrhoea [Unknown]

NARRATIVE: CASE EVENT DATE: 20140612
